FAERS Safety Report 25824898 (Version 1)
Quarter: 2025Q3

REPORT INFORMATION
  Report Type: Spontaneous
  Country: US (occurrence: None)
  Receive Date: 20250919
  Receipt Date: 20250919
  Transmission Date: 20251020
  Serious: Yes (Hospitalization)
  Sender: FDA-CTU
  Company Number: None

PATIENT
  Age: 63 Year
  Sex: Female

DRUGS (1)
  1. CAPECITABINE [Suspect]
     Active Substance: CAPECITABINE
     Indication: Rectal cancer
     Dosage: C1500MG TWICE DAILY FOR 14 DAYS ?

REACTIONS (8)
  - Dry skin [None]
  - Dry skin [None]
  - Neuralgia [None]
  - Fatigue [None]
  - Abdominal pain upper [None]
  - Diarrhoea [None]
  - Gastrointestinal viral infection [None]
  - Therapy interrupted [None]
